FAERS Safety Report 5124673-3 (Version None)
Quarter: 2006Q4

REPORT INFORMATION
  Report Type: 
  Country: None (occurrence: None)
  Receive Date: 20061011
  Receipt Date: 20061003
  Transmission Date: 20070319
  Serious: Yes (Hospitalization)
  Sender: FDA-Public Use
  Company Number: US-BAYER-200615846BWH

PATIENT
  Age: 59 Year
  Sex: Female
  Weight: 65 kg

DRUGS (1)
  1. SORAFENIB [Suspect]
     Indication: NON-SMALL CELL LUNG CANCER
     Dosage: TOTAL DAILY DOSE: 800 MG  UNIT DOSE: 200 MG
     Route: 048
     Dates: start: 20060831, end: 20061003

REACTIONS (2)
  - CARDIOGENIC SHOCK [None]
  - VENTRICULAR TACHYCARDIA [None]
